FAERS Safety Report 5191095-9 (Version None)
Quarter: 2006Q4

REPORT INFORMATION
  Report Type: 
  Country: None (occurrence: None)
  Receive Date: 20061226
  Receipt Date: 20060707
  Transmission Date: 20070319
  Serious: Yes (Other)
  Sender: FDA-Public Use
  Company Number: PHEH2006US08763

PATIENT
  Age: 77 Year
  Sex: Female

DRUGS (2)
  1. EXJADE [Suspect]
     Indication: MYELODYSPLASTIC SYNDROME
     Dosage: 1250 MG, QD
     Route: 048
     Dates: start: 20060201, end: 20060501
  2. THALIDOMIDE [Concomitant]

REACTIONS (3)
  - MACULAR DEGENERATION [None]
  - RETINAL PIGMENT EPITHELIOPATHY [None]
  - VISUAL ACUITY REDUCED [None]
